FAERS Safety Report 10016198 (Version 1)
Quarter: 2014Q1

REPORT INFORMATION
  Report Type: Spontaneous
  Country: GB (occurrence: GB)
  Receive Date: 20140317
  Receipt Date: 20140317
  Transmission Date: 20141002
  Serious: Yes (Other)
  Sender: FDA-Public Use
  Company Number: GB-PFIZER INC-2014071410

PATIENT
  Age: 39 Year
  Sex: Female

DRUGS (1)
  1. CHAMPIX [Suspect]
     Indication: SMOKING CESSATION THERAPY
     Dosage: 10 DAYS OF STARTER PACK
     Route: 048
     Dates: start: 20140127, end: 20140204

REACTIONS (9)
  - Headache [Recovered/Resolved]
  - Musculoskeletal stiffness [Recovered/Resolved]
  - Eye pain [Recovered/Resolved]
  - Arthralgia [Recovered/Resolved]
  - Dysphagia [Recovered/Resolved]
  - Abdominal pain [Recovered/Resolved]
  - Abdominal distension [Recovered/Resolved]
  - Anxiety [Recovering/Resolving]
  - Aggression [Recovered/Resolved]
